FAERS Safety Report 14248777 (Version 7)
Quarter: 2018Q3

REPORT INFORMATION
  Report Type: Spontaneous
  Country: ES (occurrence: ES)
  Receive Date: 20171204
  Receipt Date: 20180910
  Transmission Date: 20181010
  Serious: Yes (Other)
  Sender: FDA-Public Use
  Company Number: ES-PFIZER INC-2017476941

PATIENT
  Age: 12 Year
  Sex: Male

DRUGS (6)
  1. CIPROFLOXACIN. [Concomitant]
     Active Substance: CIPROFLOXACIN
     Indication: ARTHRITIS BACTERIAL
     Dosage: UNK
     Route: 048
  2. LINEZOLID. [Suspect]
     Active Substance: LINEZOLID
     Indication: ARTHRITIS BACTERIAL
     Dosage: UNK
     Route: 042
  3. LINEZOLID. [Suspect]
     Active Substance: LINEZOLID
     Indication: OSTEOMYELITIS
  4. LINEZOLID. [Suspect]
     Active Substance: LINEZOLID
     Indication: OSTEOMYELITIS
  5. CIPROFLOXACIN. [Concomitant]
     Active Substance: CIPROFLOXACIN
     Indication: OSTEOMYELITIS
     Dosage: UNK
     Route: 042
  6. LINEZOLID. [Suspect]
     Active Substance: LINEZOLID
     Indication: ARTHRITIS BACTERIAL
     Dosage: 600 MG, 2X/DAY (EACH 12 HOURS )
     Route: 048
     Dates: start: 20120904, end: 20121017

REACTIONS (8)
  - Dyspepsia [Recovered/Resolved]
  - Toxicity to various agents [Recovered/Resolved]
  - Leukopenia [Recovered/Resolved]
  - Bone marrow failure [Recovered/Resolved]
  - Product prescribing issue [Unknown]
  - Thrombocytopenia [Recovered/Resolved]
  - Normocytic anaemia [Recovered/Resolved]
  - Weight decreased [Recovered/Resolved]

NARRATIVE: CASE EVENT DATE: 2012
